FAERS Safety Report 8826053 (Version 1)
Quarter: 2012Q4

REPORT INFORMATION
  Report Type: 
  Country: US (occurrence: US)
  Receive Date: 20121005
  Receipt Date: 20121005
  Transmission Date: 20130627
  Serious: Yes (Death, Hospitalization)
  Sender: FDA-Public Use
  Company Number: US-ROCHE-1134335

PATIENT
  Sex: Female

DRUGS (5)
  1. RITUXAN [Suspect]
     Indication: NON-HODGKIN^S LYMPHOMA
     Route: 065
     Dates: start: 19980227
  2. DECADRON [Concomitant]
  3. HYDROCODONE [Concomitant]
  4. ZANTAC [Concomitant]
  5. DIFLUCAN [Concomitant]

REACTIONS (12)
  - Death [Fatal]
  - Sepsis [Unknown]
  - Abdominal distension [Unknown]
  - Pyrexia [Unknown]
  - Neutropenia [Unknown]
  - Pain [Unknown]
  - Hypoaesthesia [Unknown]
  - Paralysis [Unknown]
  - Paraesthesia oral [Unknown]
  - Dyspnoea [Unknown]
  - Chest discomfort [Unknown]
  - Vision blurred [Unknown]
